FAERS Safety Report 6342538-6 (Version None)
Quarter: 2009Q3

REPORT INFORMATION
  Report Type: 
  Country: None (occurrence: None)
  Receive Date: 20090908
  Receipt Date: 20090827
  Transmission Date: 20100115
  Serious: Yes (Other)
  Sender: FDA-Public Use
  Company Number: US-JNJFOC-20090800847

PATIENT
  Age: 50 Year
  Sex: Female
  Weight: 82.56 kg

DRUGS (2)
  1. REMICADE [Suspect]
     Indication: PSORIASIS
     Route: 042
  2. METHOTREXATE [Concomitant]
     Indication: PSORIASIS

REACTIONS (4)
  - AGEUSIA [None]
  - DRY MOUTH [None]
  - HYPOAESTHESIA ORAL [None]
  - SWOLLEN TONGUE [None]
